FAERS Safety Report 17340574 (Version 1)
Quarter: 2020Q1

REPORT INFORMATION
  Report Type: Spontaneous
  Country: US (occurrence: US)
  Receive Date: 20200129
  Receipt Date: 20200129
  Transmission Date: 20200409
  Serious: No
  Sender: FDA-Public Use
  Company Number: US-ALLERGAN-1915013US

PATIENT
  Age: 40 Year
  Sex: Female

DRUGS (5)
  1. DERMATOLOGICAL MEDICATION [Concomitant]
     Indication: SKIN DISORDER
     Dosage: UNK
     Route: 065
  2. BOTOX COSMETIC [Suspect]
     Active Substance: ONABOTULINUMTOXINA
     Indication: SKIN WRINKLING
     Dosage: 21 UNITS, SINGLE
     Route: 030
     Dates: start: 20190220, end: 20190220
  3. BOTOX COSMETIC [Suspect]
     Active Substance: ONABOTULINUMTOXINA
     Indication: SKIN WRINKLING
     Dosage: 8 UNITS, SINGLE
     Route: 030
     Dates: start: 20181112, end: 20181112
  4. BOTOX COSMETIC [Suspect]
     Active Substance: ONABOTULINUMTOXINA
     Indication: SKIN WRINKLING
     Dosage: 8 UNITS, SINGLE
     Route: 030
     Dates: start: 20181112, end: 20181112
  5. DERMATOLOGICAL MEDICATION [Concomitant]
     Indication: RASH

REACTIONS (4)
  - Product preparation error [Unknown]
  - Wrong technique in product usage process [Unknown]
  - Off label use [Unknown]
  - Drug ineffective [Unknown]

NARRATIVE: CASE EVENT DATE: 20181112
